FAERS Safety Report 5631919-1 (Version None)
Quarter: 2008Q1

REPORT INFORMATION
  Report Type: 
  Country: None (occurrence: None)
  Receive Date: 20080220
  Receipt Date: 20080208
  Transmission Date: 20080703
  Serious: Yes (Hospitalization)
  Sender: FDA-Public Use
  Company Number: US-AMGEN-US261221

PATIENT
  Age: 70 Year
  Sex: Male
  Weight: 65.4 kg

DRUGS (1)
  1. ENBREL [Suspect]
     Indication: RHEUMATOID ARTHRITIS
     Route: 058
     Dates: start: 20071025, end: 20080115

REACTIONS (1)
  - PULMONARY TUBERCULOSIS [None]
